FAERS Safety Report 6614434-8 (Version None)
Quarter: 2010Q1

REPORT INFORMATION
  Report Type: 
  Country: None (occurrence: None)
  Receive Date: 20100303
  Receipt Date: 20100303
  Transmission Date: 20100710
  Serious: Yes (Other)
  Sender: FDA-Public Use
  Company Number: None

PATIENT
  Age: 61 Year
  Sex: Female
  Weight: 79.5 kg

DRUGS (1)
  1. WELCHOL [Suspect]
     Indication: HYPERLIPIDAEMIA
     Dosage: 625 MG 6 TABS Q D 3750 DAILY PO 047 SIX MONTHS (APPROX)

REACTIONS (1)
  - MYALGIA [None]
